FAERS Safety Report 8871393 (Version 1)
Quarter: 2012Q4

REPORT INFORMATION
  Report Type: 
  Country: US (occurrence: US)
  Receive Date: 20121026
  Receipt Date: 20121026
  Transmission Date: 20130627
  Serious: No
  Sender: FDA-Public Use
  Company Number: US-AMGEN-USASP2012048344

PATIENT
  Age: 49 Year
  Sex: Female
  Weight: 77.1 kg

DRUGS (15)
  1. ENBREL [Suspect]
     Indication: PRODUCT USED FOR UNKNOWN INDICATION
     Dosage: 50 mg, qwk
     Route: 058
  2. VIVELLE-DOT [Concomitant]
     Dosage: 0.025 mg, UNK
  3. VIMPAT [Concomitant]
     Dosage: 100 mg, UNK
  4. CLONAZEPAM [Concomitant]
     Dosage: 1 mg, UNK
  5. CEFUROXIME [Concomitant]
     Dosage: 250 mg, UNK
  6. PRIMIDONE [Concomitant]
     Dosage: 250 mg, UNK
  7. VAGIFEM [Concomitant]
     Dosage: 10 mug, UNK
  8. VITAMIN C                          /00008001/ [Concomitant]
     Dosage: 1000 mg, UNK
  9. LEXAPRO [Concomitant]
     Dosage: 20 mg, UNK
  10. PROGESTERONE [Concomitant]
     Dosage: 100 mg, UNK
  11. PAPAYA ENZYME                      /00389401/ [Concomitant]
  12. FLAXSEED OIL [Concomitant]
     Dosage: UNK
  13. MULTIVITAMIN                       /00097801/ [Concomitant]
     Dosage: UNK
  14. KEPPRA [Concomitant]
     Dosage: 500 mg, UNK
  15. GRAPE SEED EXTRACT [Concomitant]
     Dosage: UNK

REACTIONS (1)
  - Sinusitis [Unknown]
